FAERS Safety Report 4523396-9 (Version None)
Quarter: 2004Q4

REPORT INFORMATION
  Report Type: 
  Country: None (occurrence: None)
  Receive Date: 20041209
  Receipt Date: 20041209
  Transmission Date: 20050328
  Serious: No
  Sender: FDA-Public Use
  Company Number: None

PATIENT
  Age: 19 Month
  Sex: Female

DRUGS (2)
  1. SYNAGIS [Suspect]
     Dosage: IM 1.55 ML
     Route: 030
     Dates: start: 20041118, end: 20041118
  2. SYNAGIS [Suspect]

REACTIONS (3)
  - BLISTER [None]
  - ERYTHEMA [None]
  - RASH MACULO-PAPULAR [None]
